FAERS Safety Report 9470891 (Version 3)
Quarter: 2013Q4

REPORT INFORMATION
  Report Type: Report from Study
  Country: FR (occurrence: FR)
  Receive Date: 20130822
  Receipt Date: 20131105
  Transmission Date: 20140711
  Serious: Yes (Death, Life-Threatening, Hospitalization, Other)
  Sender: FDA-Public Use
  Company Number: FR-INCYTE CORPORATION-2013IN001842

PATIENT
  Age: 68 Year
  Sex: Female
  Weight: 70 kg

DRUGS (19)
  1. INC424 [Suspect]
     Indication: MYELOFIBROSIS
     Dosage: 15 MG, BID
     Route: 048
     Dates: start: 20130308, end: 20130616
  2. INC424 [Suspect]
     Dosage: 5 MG, BID
     Route: 048
     Dates: start: 20130617, end: 20130626
  3. CYCLOSPORINE [Concomitant]
     Dosage: UNK
     Dates: start: 20130705
  4. HEPARIN [Concomitant]
  5. CLINOMEL [Concomitant]
     Dosage: UNK
     Dates: start: 20130708
  6. FORTUM [Concomitant]
     Dosage: UNK
     Dates: start: 20130708
  7. ACICLOVIR [Concomitant]
     Dosage: UNK
     Dates: start: 20130705
  8. TRIFLUCAN [Concomitant]
     Dosage: UNK
     Dates: start: 20130705
  9. MYCOPHENOLATE MOFETIL [Concomitant]
     Dosage: UNK
     Dates: start: 20130705
  10. ACUPAN [Concomitant]
     Dosage: UNK
     Dates: start: 20130706
  11. TAVANIC [Concomitant]
     Dosage: UNK
     Dates: start: 20130709
  12. LEVOTHYROX [Concomitant]
     Dosage: UNK
  13. DOMPERIDONE [Concomitant]
  14. ROCALTROL [Concomitant]
     Dosage: UNK
  15. ATACAND [Concomitant]
  16. DELURSAN [Concomitant]
     Dosage: UNK
     Dates: start: 20130627
  17. ZOPHREN [Concomitant]
  18. FLUDARABINE [Concomitant]
  19. MELPHALAN [Concomitant]

REACTIONS (3)
  - Cardiogenic shock [Recovered/Resolved]
  - Haemoptysis [Recovered/Resolved]
  - Graft versus host disease [Fatal]
